FAERS Safety Report 7864274-7 (Version None)
Quarter: 2011Q4

REPORT INFORMATION
  Report Type: 
  Country: None (occurrence: None)
  Receive Date: 20111028
  Receipt Date: 20100909
  Transmission Date: 20120403
  Serious: No
  Sender: FDA-Public Use
  Company Number: US-GLAXOSMITHKLINE-A0880965A

PATIENT
  Sex: Male

DRUGS (3)
  1. ALBUTEROL [Concomitant]
  2. SEREVENT [Suspect]
     Indication: PRODUCT USED FOR UNKNOWN INDICATION
     Dosage: 50MCG UNKNOWN
     Route: 055
     Dates: start: 20090101
  3. FLOVENT [Concomitant]

REACTIONS (1)
  - DRUG ADMINISTRATION ERROR [None]
